FAERS Safety Report 11302312 (Version 4)
Quarter: 2018Q1

REPORT INFORMATION
  Report Type: Report from Study
  Country: GR (occurrence: GR)
  Receive Date: 20150723
  Receipt Date: 20180101
  Transmission Date: 20180508
  Serious: Yes (Other)
  Sender: FDA-Public Use
  Company Number: GR-ROCHE-1611129

PATIENT

DRUGS (1)
  1. PIRFENIDONE. [Suspect]
     Active Substance: PIRFENIDONE
     Indication: IDIOPATHIC PULMONARY FIBROSIS
     Route: 065

REACTIONS (12)
  - Rash [Unknown]
  - Irritability [Unknown]
  - Photosensitivity reaction [Unknown]
  - Diarrhoea [Unknown]
  - Gastrointestinal toxicity [Unknown]
  - Pneumonia [Unknown]
  - Haematuria [Unknown]
  - Vomiting [Unknown]
  - Nausea [Unknown]
  - Decreased appetite [Unknown]
  - Insomnia [Unknown]
  - Fatigue [Unknown]
